FAERS Safety Report 12690383 (Version 2)
Quarter: 2016Q4

REPORT INFORMATION
  Report Type: Spontaneous
  Country: US (occurrence: US)
  Receive Date: 20160826
  Receipt Date: 20161212
  Transmission Date: 20170207
  Serious: No
  Sender: FDA-Public Use
  Company Number: US-FRI-1000084092

PATIENT
  Sex: Female

DRUGS (2)
  1. ESCITALOPRAM OXALATE UNK [Suspect]
     Active Substance: ESCITALOPRAM OXALATE
     Indication: STRESS
     Dosage: 10 MG, QD
     Route: 048
     Dates: start: 2016, end: 20160409
  2. ESCITALOPRAM OXALATE UNK [Suspect]
     Active Substance: ESCITALOPRAM OXALATE
     Dosage: 5 MG, QD
     Route: 048
     Dates: start: 20160410

REACTIONS (7)
  - Pollakiuria [Not Recovered/Not Resolved]
  - Somnolence [Not Recovered/Not Resolved]
  - Headache [Not Recovered/Not Resolved]
  - Drug ineffective [Not Recovered/Not Resolved]
  - Dyspnoea [Not Recovered/Not Resolved]
  - Snoring [Not Recovered/Not Resolved]
  - Off label use [Not Recovered/Not Resolved]

NARRATIVE: CASE EVENT DATE: 2016
